FAERS Safety Report 25891531 (Version 1)
Quarter: 2025Q4

REPORT INFORMATION
  Report Type: Spontaneous
  Country: US (occurrence: None)
  Receive Date: 20251007
  Receipt Date: 20251007
  Transmission Date: 20260118
  Serious: Yes (Hospitalization)
  Sender: FDA-CTU
  Company Number: None

PATIENT
  Sex: Female

DRUGS (1)
  1. GLATIRAMER ACETATE [Suspect]
     Active Substance: GLATIRAMER ACETATE
     Indication: Multiple sclerosis
     Dosage: 40 MG 3 TIMES A WEEK SUBCUTANEOUS?
     Route: 058
     Dates: start: 20221019

REACTIONS (5)
  - Multiple sclerosis [None]
  - Weight increased [None]
  - Tooth infection [None]
  - Dizziness [None]
  - Asthenia [None]
